FAERS Safety Report 26116134 (Version 2)
Quarter: 2025Q4

REPORT INFORMATION
  Report Type: Spontaneous
  Country: EU (occurrence: EU)
  Receive Date: 20251203
  Receipt Date: 20251204
  Transmission Date: 20260119
  Serious: No
  Sender: SANOFI AVENTIS
  Company Number: EU-SANOFI-02736474

PATIENT
  Age: 80 Year
  Sex: Male

DRUGS (1)
  1. LANTUS [Suspect]
     Active Substance: INSULIN GLARGINE
     Dosage: UNK

REACTIONS (1)
  - No adverse event [Unknown]
